FAERS Safety Report 13250840 (Version 1)
Quarter: 2017Q1

REPORT INFORMATION
  Report Type: Spontaneous
  Country: US (occurrence: US)
  Receive Date: 20170220
  Receipt Date: 20170220
  Transmission Date: 20170428
  Serious: Yes (Other)
  Sender: FDA-Public Use
  Company Number: US-TEVA-672362USA

PATIENT
  Age: 58 Year
  Sex: Female
  Weight: 63.1 kg

DRUGS (1)
  1. ETOPOSIDE. [Suspect]
     Active Substance: ETOPOSIDE
     Indication: SMALL CELL LUNG CANCER
     Dosage: 20 MG/ML, 500 MG
     Dates: start: 20160120, end: 20160120

REACTIONS (2)
  - Throat tightness [Unknown]
  - Hot flush [Unknown]

NARRATIVE: CASE EVENT DATE: 20160120
